FAERS Safety Report 9528775 (Version 1)
Quarter: 2013Q1

REPORT INFORMATION
  Report Type: Spontaneous
  Country: US (occurrence: None)
  Receive Date: 20130314
  Receipt Date: 20130314
  Transmission Date: 20140127
  Serious: No
  Sender: FDA-Public Use
  Company Number: 1212USA000354

PATIENT
  Age: 25 Year
  Sex: Female

DRUGS (3)
  1. VICTRELIS [Suspect]
     Indication: HEPATITIS C
     Route: 048
     Dates: start: 201211
  2. PEGINTRON [Suspect]
     Indication: HEPATITIS C
     Route: 058
     Dates: start: 2012
  3. RIBASPHERE (RIBAVIRIN) [Suspect]
     Indication: HEPATITIS C
     Dates: start: 2012

REACTIONS (5)
  - Rash pruritic [None]
  - Depression [None]
  - Nausea [None]
  - Insomnia [None]
  - Dysgeusia [None]
